FAERS Safety Report 16735733 (Version 5)
Quarter: 2020Q1

REPORT INFORMATION
  Report Type: Spontaneous
  Country: US (occurrence: US)
  Receive Date: 20190823
  Receipt Date: 20200220
  Transmission Date: 20200409
  Serious: Yes (Other)
  Sender: FDA-Public Use
  Company Number: US-PFIZER INC-2019362128

PATIENT
  Age: 54 Year
  Sex: Female

DRUGS (1)
  1. LYRICA [Suspect]
     Active Substance: PREGABALIN
     Indication: NEUROPATHY PERIPHERAL
     Dosage: 300 MG, TWICE A DAY (MORNING 1 TABLET, EVENING 1 TABLET)
     Dates: start: 20190730

REACTIONS (2)
  - Cerebrovascular accident [Unknown]
  - Pain [Unknown]
